FAERS Safety Report 9687428 (Version 1)
Quarter: 2013Q4

REPORT INFORMATION
  Report Type: Spontaneous
  Country: US (occurrence: US)
  Receive Date: 20131114
  Receipt Date: 20131114
  Transmission Date: 20140711
  Serious: No
  Sender: FDA-Public Use
  Company Number: US-BIOGENIDEC-2013BI079268

PATIENT
  Age: 46 Year
  Sex: Male

DRUGS (12)
  1. AVONEX [Suspect]
     Indication: MULTIPLE SCLEROSIS
     Route: 030
     Dates: start: 20021120, end: 20130920
  2. VITAMIN D3 [Concomitant]
     Indication: PRODUCT USED FOR UNKNOWN INDICATION
  3. ZANTAC [Concomitant]
     Indication: PRODUCT USED FOR UNKNOWN INDICATION
  4. ZYRTEC [Concomitant]
  5. PROAIR [Concomitant]
  6. ZOLPIDEM [Concomitant]
     Indication: INSOMNIA
  7. TRAZODONE [Concomitant]
  8. GLUCOSAMINE CHONDROITIN [Concomitant]
  9. COQ10 [Concomitant]
  10. VITAMIN C [Concomitant]
  11. OMEGA-3 FISH OIL [Concomitant]
  12. NAPROSYN [Concomitant]

REACTIONS (4)
  - Sedation [Unknown]
  - Urticaria [Not Recovered/Not Resolved]
  - Rash [Unknown]
  - Fatigue [Recovered/Resolved]
